FAERS Safety Report 14704294 (Version 1)
Quarter: 2018Q2

REPORT INFORMATION
  Report Type: Spontaneous
  Country: US (occurrence: US)
  Receive Date: 20180402
  Receipt Date: 20180402
  Transmission Date: 20180711
  Serious: No
  Sender: FDA-Public Use
  Company Number: US-ALLERGAN-1763194US

PATIENT

DRUGS (2)
  1. CANASA [Suspect]
     Active Substance: MESALAMINE
     Indication: PRURITUS
     Dosage: 1 DF, QPM
     Route: 065
     Dates: start: 20171002, end: 20171008
  2. CANASA [Suspect]
     Active Substance: MESALAMINE
     Indication: HAEMORRHOIDS
     Dosage: UNK
     Route: 065

REACTIONS (2)
  - Off label use [Unknown]
  - Drug ineffective for unapproved indication [Unknown]
